FAERS Safety Report 25564063 (Version 1)
Quarter: 2025Q3

REPORT INFORMATION
  Report Type: Spontaneous
  Country: US (occurrence: US)
  Receive Date: 20250716
  Receipt Date: 20250716
  Transmission Date: 20251021
  Serious: Yes (Other)
  Sender: SANOFI AVENTIS
  Company Number: US-SA-2025SA197244

PATIENT
  Age: 73 Year
  Sex: Male

DRUGS (7)
  1. DUPIXENT [Suspect]
     Active Substance: DUPILUMAB
     Indication: Pemphigoid
     Dosage: 300 MG, QOW
     Route: 058
     Dates: start: 202505
  2. DOXYCYCLINE [Concomitant]
     Active Substance: DOXYCYCLINE
  3. GABAPENTIN [Concomitant]
     Active Substance: GABAPENTIN
  4. IBUPROFEN [Concomitant]
     Active Substance: IBUPROFEN
  5. NIACIN [Concomitant]
     Active Substance: NIACIN
  6. Triamcinolon [Concomitant]
  7. PREDNISONE [Concomitant]
     Active Substance: PREDNISONE

REACTIONS (11)
  - Ear infection [Unknown]
  - Osteomyelitis [Unknown]
  - Bell^s palsy [Unknown]
  - Hypoacusis [Unknown]
  - Blood glucose fluctuation [Unknown]
  - Blood pressure fluctuation [Unknown]
  - Speech disorder [Unknown]
  - Asthenia [Unknown]
  - Pruritus [Unknown]
  - Surgery [Unknown]
  - Product use in unapproved indication [Unknown]

NARRATIVE: CASE EVENT DATE: 20250101
